FAERS Safety Report 10885940 (Version 1)
Quarter: 2015Q1

REPORT INFORMATION
  Report Type: Spontaneous
  Country: US (occurrence: US)
  Receive Date: 20150304
  Receipt Date: 20150304
  Transmission Date: 20150721
  Serious: Yes (Death)
  Sender: FDA-Public Use
  Company Number: US-BANPHARM-20153627

PATIENT
  Age: 23 Year
  Sex: Male

DRUGS (4)
  1. FENTANYL. [Suspect]
     Active Substance: FENTANYL
  2. FLUCONAZOLE. [Suspect]
     Active Substance: FLUCONAZOLE
  3. DIPHENHYDRAMINE UNKNOWN PRODUCT [Suspect]
     Active Substance: DIPHENHYDRAMINE
  4. HYDROMORPHONE [Suspect]
     Active Substance: HYDROMORPHONE

REACTIONS (1)
  - Completed suicide [Fatal]
